FAERS Safety Report 5883798-5 (Version None)
Quarter: 2008Q3

REPORT INFORMATION
  Report Type: 
  Country: None (occurrence: None)
  Receive Date: 20080915
  Receipt Date: 20080904
  Transmission Date: 20090109
  Serious: Yes (Hospitalization)
  Sender: FDA-Public Use
  Company Number: A0728605A

PATIENT
  Age: 39 Year
  Sex: Male
  Weight: 79.5 kg

DRUGS (4)
  1. AVANDIA [Suspect]
     Indication: DRUG USE FOR UNKNOWN INDICATION
     Dosage: 4MG TWICE PER DAY
     Route: 048
     Dates: start: 20010101, end: 20061001
  2. GLUCOPHAGE [Concomitant]
  3. METFORMIN HCL [Concomitant]
  4. DIABETA [Concomitant]

REACTIONS (2)
  - ISCHAEMIA [None]
  - MYOCARDIAL ISCHAEMIA [None]
